FAERS Safety Report 6974992-0 (Version None)
Quarter: 2010Q3

REPORT INFORMATION
  Report Type: 
  Country: None (occurrence: None)
  Receive Date: 20100910
  Receipt Date: 20090216
  Transmission Date: 20110219
  Serious: No
  Sender: FDA-Public Use
  Company Number: US-WYE-H07710309

PATIENT
  Sex: Female
  Weight: 77.18 kg

DRUGS (4)
  1. PRISTIQ [Suspect]
     Indication: DEPRESSION
     Route: 048
     Dates: start: 20081101, end: 20081101
  2. PRISTIQ [Suspect]
     Indication: FIBROMYALGIA
  3. REQUIP [Concomitant]
  4. NEURONTIN [Concomitant]

REACTIONS (2)
  - MEDICATION RESIDUE [None]
  - URTICARIA [None]
